FAERS Safety Report 9888170 (Version 1)
Quarter: 2014Q1

REPORT INFORMATION
  Report Type: Spontaneous
  Country: US (occurrence: US)
  Receive Date: 20140211
  Receipt Date: 20140211
  Transmission Date: 20141002
  Serious: No
  Sender: FDA-Public Use
  Company Number: US-009507513-1402USA004515

PATIENT
  Age: 50 Year
  Sex: Female

DRUGS (1)
  1. DULERA [Suspect]
     Indication: ASTHMA
     Dosage: DOSE 200/5 MICROGRAM, FREQUENCY UNSPECIFIED
     Route: 055
     Dates: start: 20140203, end: 201402

REACTIONS (5)
  - Cheilitis [Recovering/Resolving]
  - Lip pruritus [Recovering/Resolving]
  - Swelling face [Recovering/Resolving]
  - Lip swelling [Recovering/Resolving]
  - Rash [Recovering/Resolving]
